FAERS Safety Report 8622477 (Version 3)
Quarter: 2012Q4

REPORT INFORMATION
  Report Type: 
  Country: US (occurrence: US)
  Receive Date: 20120619
  Receipt Date: 20121010
  Transmission Date: 20130627
  Serious: Yes (Other)
  Sender: FDA-Public Use
  Company Number: US-PFIZER INC-2012145036

PATIENT
  Sex: Female

DRUGS (2)
  1. LYRICA [Suspect]
     Dosage: 75 mg, 4x/day
     Route: 048
  2. LYRICA [Suspect]

REACTIONS (4)
  - Spinal disorder [Unknown]
  - Psychotic disorder [Unknown]
  - Mental impairment [Unknown]
  - Product label issue [Unknown]
